FAERS Safety Report 4553946-8 (Version None)
Quarter: 2005Q1

REPORT INFORMATION
  Report Type: 
  Country: None (occurrence: None)
  Receive Date: 20050118
  Receipt Date: 20050103
  Transmission Date: 20050727
  Serious: Yes (Disabling, Other)
  Sender: FDA-Public Use
  Company Number: PHBS2005IL00754

PATIENT
  Age: 59 Year
  Sex: Female

DRUGS (1)
  1. HYPOTEARS (NVO) [Suspect]
     Indication: KERATOCONJUNCTIVITIS SICCA
     Dates: start: 20020503

REACTIONS (8)
  - EYE INJURY [None]
  - EYE LASER SURGERY [None]
  - EYE PAIN [None]
  - RETINAL HAEMORRHAGE [None]
  - RETINAL TEAR [None]
  - VISION BLURRED [None]
  - VITREOUS DETACHMENT [None]
  - VITREOUS FLOATERS [None]
